FAERS Safety Report 10308665 (Version 1)
Quarter: 2014Q3

REPORT INFORMATION
  Report Type: Spontaneous
  Country: FR (occurrence: FR)
  Receive Date: 20140716
  Receipt Date: 20140716
  Transmission Date: 20150326
  Serious: Yes (Life-Threatening, Other)
  Sender: FDA-Public Use
  Company Number: FR-BRISTOL-MYERS SQUIBB COMPANY-21174669

PATIENT
  Age: 79 Year
  Sex: Female

DRUGS (9)
  1. BROMAZEPAM [Concomitant]
     Active Substance: BROMAZEPAM
  2. LEVOTHYROX [Concomitant]
     Active Substance: LEVOTHYROXINE
  3. PARACETAMOL [Suspect]
     Active Substance: ACETAMINOPHEN
     Route: 048
  4. IXPRIM [Suspect]
     Active Substance: ACETAMINOPHEN\TRAMADOL HYDROCHLORIDE
  5. FLECAINIDE [Concomitant]
     Active Substance: FLECAINIDE
  6. ROSUVASTATIN [Suspect]
     Active Substance: ROSUVASTATIN
  7. NEBIVOLOL [Concomitant]
     Active Substance: NEBIVOLOL
  8. COUMADINE [Suspect]
     Active Substance: WARFARIN SODIUM
     Route: 048
     Dates: end: 20140617
  9. MIANSERIN [Concomitant]
     Active Substance: MIANSERIN

REACTIONS (4)
  - Sepsis [Recovering/Resolving]
  - Shock haemorrhagic [Recovering/Resolving]
  - Pyelonephritis [Recovering/Resolving]
  - Drug interaction [Recovering/Resolving]

NARRATIVE: CASE EVENT DATE: 20140617
